FAERS Safety Report 4299902-9 (Version None)
Quarter: 2004Q1

REPORT INFORMATION
  Report Type: 
  Country: None (occurrence: None)
  Receive Date: 20040219
  Receipt Date: 20040219
  Transmission Date: 20041129
  Serious: Yes (Hospitalization)
  Sender: FDA-Public Use
  Company Number: None

PATIENT
  Age: 86 Year
  Sex: Male
  Weight: 84.8226 kg

DRUGS (5)
  1. DIGOXIN [Suspect]
     Indication: ATRIAL FIBRILLATION
  2. CITALOPRAM [Concomitant]
  3. FUROSEMIDE [Concomitant]
  4. FOSINOPRIL SODIUM [Concomitant]
  5. FLECAMIDE [Concomitant]

REACTIONS (2)
  - DIZZINESS [None]
  - HEART RATE DECREASED [None]
